FAERS Safety Report 8325766 (Version 4)
Quarter: 2013Q3

REPORT INFORMATION
  Report Type: Report from Study
  Country: ES (occurrence: ES)
  Receive Date: 20120106
  Receipt Date: 20130827
  Transmission Date: 20140515
  Serious: Yes (Death, Hospitalization)
  Sender: FDA-Public Use
  Company Number: ES-ABBOTT-12P-144-0889162-00

PATIENT
  Age: 68 Year
  Sex: Female

DRUGS (7)
  1. HUMIRA [Suspect]
     Indication: PSORIASIS
     Route: 058
     Dates: start: 20090413, end: 20091017
  2. DAIVOBET [Concomitant]
     Indication: PSORIASIS
     Dates: start: 20090803, end: 20100517
  3. DAIVOBET [Concomitant]
     Dates: start: 20110411
  4. CLARELUX [Concomitant]
     Indication: PSORIASIS
     Dosage: 500 UG/G
     Dates: start: 20091019, end: 20100517
  5. CLARELUX [Concomitant]
     Dates: start: 20110411
  6. STELARA [Concomitant]
     Indication: PSORIASIS
     Dates: start: 20091104, end: 20110704
  7. METHOTREXATE [Concomitant]
     Indication: PSORIASIS
     Dates: start: 20110412, end: 20110509

REACTIONS (1)
  - Pancreatic carcinoma [Fatal]
